FAERS Safety Report 15130746 (Version 1)
Quarter: 2018Q3

REPORT INFORMATION
  Report Type: Spontaneous
  Country: US (occurrence: US)
  Receive Date: 20180615
  Receipt Date: 20180615
  Transmission Date: 20181010
  Serious: No
  Sender: FDA-Public Use
  Company Number: None

PATIENT
  Age: 63 Year
  Sex: Male

DRUGS (2)
  1. ZYTIGA [Concomitant]
     Active Substance: ABIRATERONE ACETATE
  2. PREDNISONE 5MG TAB [Suspect]
     Active Substance: PREDNISONE

REACTIONS (4)
  - Ephelides [None]
  - Muscle spasms [None]
  - Oedema peripheral [None]
  - Erythema [None]

NARRATIVE: CASE EVENT DATE: 20180611
